FAERS Safety Report 4479014-1 (Version None)
Quarter: 2004Q4

REPORT INFORMATION
  Report Type: 
  Country: None (occurrence: None)
  Receive Date: 20041019
  Receipt Date: 20041006
  Transmission Date: 20050328
  Serious: Yes (Other)
  Sender: FDA-Public Use
  Company Number: CL-MERCK-0410CHL00010

PATIENT
  Age: 62 Year
  Sex: Female

DRUGS (3)
  1. VIOXX [Suspect]
     Indication: OSTEOARTHRITIS
     Route: 048
     Dates: start: 20010101, end: 20040901
  2. VIOXX [Suspect]
     Indication: INTERVERTEBRAL DISC DISORDER
     Route: 048
     Dates: start: 20010101, end: 20040901
  3. [THERAPY UNSPECIFIED] [Concomitant]
     Indication: EPILEPSY
     Route: 065

REACTIONS (1)
  - CEREBROVASCULAR ACCIDENT [None]
